FAERS Safety Report 7885604-6 (Version None)
Quarter: 2011Q4

REPORT INFORMATION
  Report Type: 
  Country: None (occurrence: None)
  Receive Date: 20111102
  Receipt Date: 20110627
  Transmission Date: 20120403
  Serious: No
  Sender: FDA-Public Use
  Company Number: US-AMGEN-USASP2011032590

PATIENT
  Age: 64 Year
  Sex: Female
  Weight: 61.224 kg

DRUGS (15)
  1. HYDROXYCHLOROQUINE SULFATE [Concomitant]
     Dosage: 200 MG, UNK
  2. CALCIUM [Concomitant]
     Dosage: 500 UNK, UNK
  3. PREDNISONE [Concomitant]
     Dosage: 1 MG, UNK
  4. OMEPRAZOLE [Concomitant]
     Dosage: 20 MG, UNK
  5. SULFASALAZINE [Concomitant]
     Dosage: 500 MG, UNK
  6. HYDROCODONE BITARTRATE AND ACETAMINOPHEN [Concomitant]
     Dosage: UNK
  7. ASPIRIN [Concomitant]
     Dosage: 81 MG, UNK
  8. ENBREL [Suspect]
     Indication: PRODUCT USED FOR UNKNOWN INDICATION
     Dosage: 50 MG, QWK
  9. SYMBICORT [Concomitant]
     Dosage: UNK
  10. GLUCOSAMINE [Concomitant]
     Dosage: UNK
  11. FISH OIL [Concomitant]
  12. FOLIC ACID [Concomitant]
     Dosage: 1 MG, UNK
  13. ALPRAZOLAM [Concomitant]
     Dosage: .25 MG, UNK
  14. METHOTREXATE [Concomitant]
     Dosage: 2.5 MG, UNK
  15. IBUPROFEN (ADVIL) [Concomitant]
     Dosage: 200 MG, UNK

REACTIONS (1)
  - INJECTION SITE PAIN [None]
